FAERS Safety Report 21410221 (Version 2)
Quarter: 2023Q1

REPORT INFORMATION
  Report Type: Spontaneous
  Country: US (occurrence: US)
  Receive Date: 20221005
  Receipt Date: 20230126
  Transmission Date: 20230417
  Serious: No
  Sender: FDA-Public Use
  Company Number: US-ALLERGAN-2224384US

PATIENT
  Age: 51 Year
  Sex: Female

DRUGS (3)
  1. UBRELVY [Suspect]
     Active Substance: UBROGEPANT
     Indication: Migraine
     Dosage: ACTUAL:31 DF PER 3 MONTH
     Route: 048
     Dates: start: 202111
  2. UBRELVY [Suspect]
     Active Substance: UBROGEPANT
     Dosage: ACTUAL: 3 DF PER WEEK
     Route: 048
     Dates: start: 202111
  3. BOTOX [Suspect]
     Active Substance: ONABOTULINUMTOXINA
     Indication: Migraine
     Dosage: 200 UNITS, SINGLE
     Route: 058
     Dates: start: 202102, end: 202102

REACTIONS (3)
  - Incorrect route of product administration [Unknown]
  - Migraine [Not Recovered/Not Resolved]
  - Therapeutic response decreased [Unknown]

NARRATIVE: CASE EVENT DATE: 20210301
